FAERS Safety Report 8348154-9 (Version None)
Quarter: 2012Q2

REPORT INFORMATION
  Report Type: 
  Country: None (occurrence: None)
  Receive Date: 20120509
  Receipt Date: 20100708
  Transmission Date: 20120825
  Serious: No
  Sender: FDA-Public Use
  Company Number: US-TEVA-2010003734

PATIENT
  Sex: Female
  Weight: 63.56 kg

DRUGS (5)
  1. SYNTHROID [Concomitant]
     Indication: HYPOTHYROIDISM
  2. ALENDRONATE SODIUM [Concomitant]
     Dates: start: 20000101
  3. LIPITOR [Concomitant]
     Indication: BLOOD CHOLESTEROL INCREASED
     Dates: start: 20060101
  4. NUVIGIL [Suspect]
     Indication: DEPRESSED LEVEL OF CONSCIOUSNESS
     Dosage: 250 MILLIGRAM;
     Route: 048
     Dates: start: 20091201, end: 20091201
  5. TOPROL-XL [Concomitant]
     Indication: HYPERTENSION

REACTIONS (4)
  - FEELING ABNORMAL [None]
  - POOR QUALITY SLEEP [None]
  - PALPITATIONS [None]
  - NERVOUSNESS [None]
